FAERS Safety Report 8207576-7 (Version None)
Quarter: 2012Q1

REPORT INFORMATION
  Report Type: 
  Country: None (occurrence: None)
  Receive Date: 20120313
  Receipt Date: 20120313
  Transmission Date: 20120608
  Serious: Yes (Death, Hospitalization)
  Sender: FDA-Public Use
  Company Number: None

PATIENT
  Age: 72 Year
  Sex: Male

DRUGS (15)
  1. TENORMIN [Concomitant]
  2. NOVOLIN 70/30 [Concomitant]
  3. LASIX [Concomitant]
  4. TYLENOL W/ CODEINE NO. 3 [Concomitant]
  5. PRILOSEC [Concomitant]
  6. REVLIMID [Concomitant]
  7. RESTORIL [Concomitant]
  8. ZOCOR [Concomitant]
  9. PROCARDIA [Concomitant]
  10. K-TAB [Concomitant]
  11. COUMADIN [Concomitant]
  12. REVLIMID [Suspect]
     Indication: AMYLOIDOSIS
     Dosage: 5MG QDX21D/28D ORALLY
     Route: 048
  13. HYTRIN [Concomitant]
  14. ZESTRIL [Concomitant]
  15. REGLAN [Concomitant]

REACTIONS (2)
  - CARDIAC ARREST [None]
  - NO THERAPEUTIC RESPONSE [None]
